FAERS Safety Report 4892578-9 (Version None)
Quarter: 2006Q1

REPORT INFORMATION
  Report Type: 
  Country: None (occurrence: None)
  Receive Date: 20060124
  Receipt Date: 20060111
  Transmission Date: 20060701
  Serious: Yes (Hospitalization)
  Sender: FDA-Public Use
  Company Number: 2006RR-01461

PATIENT
  Age: 60 Year
  Sex: Male

DRUGS (3)
  1. RANITIDINE [Suspect]
     Dosage: ORAL
     Route: 048
  2. LISINOPRIL [Suspect]
  3. ASPIRIN [Suspect]

REACTIONS (12)
  - ACUTE MYOCARDIAL INFARCTION [None]
  - AGITATION [None]
  - ANAPHYLACTIC REACTION [None]
  - ANGIONEUROTIC OEDEMA [None]
  - BLOOD PRESSURE INCREASED [None]
  - PLEURAL EFFUSION [None]
  - PNEUMOPERICARDIUM [None]
  - PNEUMOTHORAX [None]
  - POST PROCEDURAL HAEMORRHAGE [None]
  - RESPIRATORY DISTRESS [None]
  - SUBCUTANEOUS EMPHYSEMA [None]
  - TACHYCARDIA [None]
